FAERS Safety Report 9692768 (Version 2)
Quarter: 2013Q4

REPORT INFORMATION
  Report Type: Spontaneous
  Country: US (occurrence: US)
  Receive Date: 20131118
  Receipt Date: 20131118
  Transmission Date: 20140711
  Serious: No
  Sender: FDA-Public Use
  Company Number: US-JNJFOC-20110900928

PATIENT
  Age: 57 Year
  Sex: Female
  Weight: 61.69 kg

DRUGS (1)
  1. DURAGESIC [Suspect]
     Indication: FIBROMYALGIA
     Dosage: NDC NUMBER: 50458-09405
     Route: 062
     Dates: start: 2005

REACTIONS (4)
  - Pain [Not Recovered/Not Resolved]
  - Drug ineffective [Not Recovered/Not Resolved]
  - Drug withdrawal syndrome [Not Recovered/Not Resolved]
  - Tremor [Not Recovered/Not Resolved]
